FAERS Safety Report 16108826 (Version 1)
Quarter: 2019Q1

REPORT INFORMATION
  Report Type: Spontaneous
  Country: GB (occurrence: GB)
  Receive Date: 20190323
  Receipt Date: 20190323
  Transmission Date: 20190418
  Serious: Yes (Hospitalization)
  Sender: FDA-Public Use
  Company Number: PHHY2019GB063499

PATIENT
  Age: 16 Month
  Sex: Female

DRUGS (1)
  1. CLARITHROMYCIN. [Suspect]
     Active Substance: CLARITHROMYCIN
     Indication: LOWER RESPIRATORY TRACT INFECTION
     Dosage: 20 ML, QD (250MG/5ML)
     Route: 048
     Dates: start: 20190219

REACTIONS (4)
  - Accidental overdose [Unknown]
  - Product prescribing error [Unknown]
  - Malaise [Unknown]
  - Vomiting [Unknown]
